FAERS Safety Report 8792842 (Version 3)
Quarter: 2013Q1

REPORT INFORMATION
  Report Type: Report from Study
  Country: DE (occurrence: DE)
  Receive Date: 20120918
  Receipt Date: 20130205
  Transmission Date: 20140127
  Serious: Yes (Hospitalization, Other)
  Sender: FDA-Public Use
  Company Number: DE-ABBOTT-12P-062-0966216-00

PATIENT
  Age: 68 Year
  Sex: Male
  Weight: 92 kg

DRUGS (6)
  1. HUMIRA 40 MG/ 0.8 ML PRE-FILLED SYRINGE [Suspect]
     Indication: RHEUMATOID ARTHRITIS
     Route: 058
     Dates: start: 201012
  2. METHOTREXATE [Concomitant]
     Indication: RHEUMATOID ARTHRITIS
     Dosage: 20 MG PER WEEK
  3. PREDNISOLON [Concomitant]
  4. VIGANTOLETTEN [Concomitant]
  5. OMEPRAZOL [Concomitant]
  6. TAMFULSTIN [Concomitant]

REACTIONS (13)
  - Hepatosplenomegaly [Unknown]
  - Bronchopneumonia [Recovered/Resolved]
  - Pleural effusion [Recovered/Resolved]
  - Gallbladder disorder [Unknown]
  - Aortic aneurysm [Unknown]
  - Pancreatic steatosis [Unknown]
  - Aortic arteriosclerosis [Unknown]
  - Pain in extremity [Unknown]
  - Headache [Unknown]
  - Chills [Unknown]
  - Aortic aneurysm [Unknown]
  - Pleural effusion [Unknown]
  - Psoriasis [Unknown]
